FAERS Safety Report 7248759-2 (Version None)
Quarter: 2011Q1

REPORT INFORMATION
  Report Type: 
  Country: None (occurrence: None)
  Receive Date: 20110121
  Receipt Date: 20110121
  Transmission Date: 20110831
  Serious: Yes (Other)
  Sender: FDA-Public Use
  Company Number: None

PATIENT
  Age: 56 Year
  Sex: Female

DRUGS (1)
  1. VITAMIN D [Suspect]
     Indication: HEPATITIS C
     Dosage: ONCE A WK ORAL
     Route: 048
     Dates: start: 20110111

REACTIONS (2)
  - MALAISE [None]
  - DECREASED APPETITE [None]
